FAERS Safety Report 4761854-2 (Version None)
Quarter: 2005Q3

REPORT INFORMATION
  Report Type: 
  Country: None (occurrence: None)
  Receive Date: 20050906
  Receipt Date: 20050516
  Transmission Date: 20060218
  Serious: Yes (Hospitalization)
  Sender: FDA-Public Use
  Company Number: JP-ROCHE-405076

PATIENT
  Age: 50 Year
  Sex: Male

DRUGS (2)
  1. ROCEPHIN [Suspect]
     Indication: CELLULITIS
     Route: 042
     Dates: start: 20050419, end: 20050426
  2. GENTACIN [Concomitant]
     Route: 061
     Dates: start: 20050411, end: 20050425

REACTIONS (4)
  - ANOREXIA [None]
  - JAUNDICE [None]
  - LIVER DISORDER [None]
  - MALAISE [None]
